FAERS Safety Report 5385117-X (Version None)
Quarter: 2007Q3

REPORT INFORMATION
  Report Type: 
  Country: None (occurrence: None)
  Receive Date: 20070706
  Receipt Date: 20070706
  Transmission Date: 20080115
  Serious: Yes (Other)
  Sender: FDA-Public Use
  Company Number: None

PATIENT
  Age: 82 Year
  Sex: Female

DRUGS (10)
  1. HALOPERIDOL [Suspect]
     Indication: AGITATION
     Dosage: 2 MG ONCE IV
     Route: 042
     Dates: start: 20070208
  2. PLAVIX [Concomitant]
  3. LEVOTHYROXINE SODIUM [Concomitant]
  4. CALCIUM/VITD [Concomitant]
  5. NEURONTIN [Concomitant]
  6. CELEXA [Concomitant]
  7. ASPIRIN [Concomitant]
  8. VYTORIN [Concomitant]
  9. BUPROPION HCL [Concomitant]
  10. TYLENOL (CAPLET) [Concomitant]

REACTIONS (2)
  - CONVULSION [None]
  - DYSTONIA [None]
